FAERS Safety Report 14049983 (Version 3)
Quarter: 2018Q1

REPORT INFORMATION
  Report Type: Report from Study
  Country: US (occurrence: US)
  Receive Date: 20171005
  Receipt Date: 20180130
  Transmission Date: 20180508
  Serious: Yes (Death, Hospitalization, Other)
  Sender: FDA-Public Use
  Company Number: US-GILEAD-2017-0296355

PATIENT
  Sex: Male

DRUGS (13)
  1. WARFARIN [Concomitant]
     Active Substance: WARFARIN
  2. ZOLOFT [Concomitant]
     Active Substance: SERTRALINE HYDROCHLORIDE
  3. LEVOPHED [Concomitant]
     Active Substance: NOREPINEPHRINE BITARTRATE
  4. RANOLAZINE. [Suspect]
     Active Substance: RANOLAZINE
     Indication: VENTRICULAR ARRHYTHMIA
     Route: 065
  5. ALLOPURINOL. [Concomitant]
     Active Substance: ALLOPURINOL
  6. ASA [Concomitant]
     Active Substance: ASPIRIN
  7. FLOMAX [Concomitant]
     Active Substance: TAMSULOSIN HYDROCHLORIDE
  8. COREG [Concomitant]
     Active Substance: CARVEDILOL
  9. CRESTOR [Concomitant]
     Active Substance: ROSUVASTATIN CALCIUM
  10. PLAVIX [Concomitant]
     Active Substance: CLOPIDOGREL BISULFATE
  11. FUROSEMIDE. [Concomitant]
     Active Substance: FUROSEMIDE
  12. LANTUS [Concomitant]
     Active Substance: INSULIN GLARGINE
  13. IMDUR [Concomitant]
     Active Substance: ISOSORBIDE MONONITRATE

REACTIONS (5)
  - Myocardial infarction [Unknown]
  - Dyspnoea [Unknown]
  - Cardiac failure [Unknown]
  - Cardiac failure [Fatal]
  - Gastrointestinal disorder [Unknown]
